FAERS Safety Report 7093458-3 (Version None)
Quarter: 2010Q4

REPORT INFORMATION
  Report Type: 
  Country: None (occurrence: None)
  Receive Date: 20101102
  Receipt Date: 20101026
  Transmission Date: 20110411
  Serious: Yes (Hospitalization, Other)
  Sender: FDA-Public Use
  Company Number: 1000017033

PATIENT
  Sex: Female

DRUGS (10)
  1. CELEXA [Suspect]
  2. LIPITOR [Suspect]
  3. DETROL [Suspect]
  4. CLONAZEPAM [Suspect]
  5. SEROQUEL [Suspect]
  6. SYNTHROID [Suspect]
  7. GLYBURIDE [Suspect]
  8. OXCARBAZEPINE [Suspect]
  9. ZOLPIDEM [Suspect]
  10. DIET DRUG (NOS) (DIET DRUG (NOS)) [Suspect]

REACTIONS (2)
  - CONVULSION [None]
  - DRUG INTERACTION [None]
